FAERS Safety Report 24972322 (Version 1)
Quarter: 2025Q1

REPORT INFORMATION
  Report Type: Report from Study
  Country: US (occurrence: None)
  Receive Date: 20250214
  Receipt Date: 20250214
  Transmission Date: 20250409
  Serious: Yes (Other)
  Sender: ALEXION PHARMACEUTICALS
  Company Number: US-AstraZeneca-2014SE01993

PATIENT
  Age: 50 Year
  Weight: 104.78 kg

DRUGS (3)
  1. NEXIUM [Suspect]
     Active Substance: ESOMEPRAZOLE MAGNESIUM
     Indication: Gastrooesophageal reflux disease
     Dosage: 40 MILLIGRAM, QD
  2. METOPROLOL TARTRATE [Concomitant]
     Active Substance: METOPROLOL TARTRATE
     Dosage: 25 MILLIGRAM, QD
  3. RANITIDINE HYDROCHLORIDE [Concomitant]
     Active Substance: RANITIDINE HYDROCHLORIDE
     Dosage: 150 MILLIGRAM, BID

REACTIONS (11)
  - Dysphagia [Unknown]
  - Gastrooesophageal reflux disease [Not Recovered/Not Resolved]
  - Cardiac murmur [Unknown]
  - Chest discomfort [Unknown]
  - Dyspepsia [Unknown]
  - Deafness [Unknown]
  - Gastrooesophageal reflux disease [Unknown]
  - Gastritis [Unknown]
  - Gastrointestinal disorder [Unknown]
  - Weight increased [Unknown]
  - Vertigo [Unknown]
